FAERS Safety Report 9973386 (Version 1)
Quarter: 2014Q1

REPORT INFORMATION
  Report Type: Report from Study
  Country: AU (occurrence: AU)
  Receive Date: 20140306
  Receipt Date: 20140306
  Transmission Date: 20141002
  Serious: Yes (Other)
  Sender: FDA-Public Use
  Company Number: PHHY2014AU027681

PATIENT
  Age: 89 Year
  Sex: Female

DRUGS (6)
  1. ACLASTA [Suspect]
     Dosage: 5 MG, UNK
     Route: 042
     Dates: start: 20111102
  2. ACLASTA [Suspect]
     Dosage: 5 MG, UNK
     Route: 042
     Dates: start: 20130211
  3. LIPITOR [Concomitant]
     Dosage: 10 MG DAILY
  4. MOBIC [Concomitant]
     Dosage: 7.5 MG DAILY
  5. NEXIUM//ESOMEPRAZOLE MAGNESIUM [Concomitant]
     Dosage: 20 MG DAILY
  6. OSTELIN VITAMIN D [Concomitant]
     Dosage: 1000 U DAILY

REACTIONS (1)
  - Aortic stenosis [Not Recovered/Not Resolved]
